FAERS Safety Report 13832643 (Version 1)
Quarter: 2017Q3

REPORT INFORMATION
  Report Type: Spontaneous
  Country: PL (occurrence: US)
  Receive Date: 20170803
  Receipt Date: 20170803
  Transmission Date: 20171127
  Serious: Yes (Hospitalization, Disabling)
  Sender: FDA-Public Use
  Company Number: None

PATIENT
  Sex: Male
  Weight: 50 kg

DRUGS (2)
  1. FEXOFAST [Concomitant]
  2. MIFLONIDE [Suspect]
     Active Substance: BUDESONIDE
     Indication: TRACHEITIS
     Dosage: ?          QUANTITY:2 CAPSULE(S);?
     Route: 055
     Dates: start: 20170413, end: 20170415

REACTIONS (14)
  - Tinnitus [None]
  - Insomnia [None]
  - Overdose [None]
  - Confusional state [None]
  - Thinking abnormal [None]
  - Tremor [None]
  - Crying [None]
  - Restlessness [None]
  - Chest pain [None]
  - Anger [None]
  - Hunger [None]
  - Vision blurred [None]
  - Memory impairment [None]
  - Headache [None]

NARRATIVE: CASE EVENT DATE: 20170415
